FAERS Safety Report 7652920-2 (Version None)
Quarter: 2011Q3

REPORT INFORMATION
  Report Type: 
  Country: None (occurrence: None)
  Receive Date: 20110803
  Receipt Date: 20110722
  Transmission Date: 20111222
  Serious: Yes (Other)
  Sender: FDA-Public Use
  Company Number: US-JNJFOC-20110710408

PATIENT
  Age: 37 Year
  Sex: Female

DRUGS (4)
  1. STEROIDS NOS [Concomitant]
     Indication: IMMUNOSUPPRESSION
     Route: 042
  2. REMICADE [Suspect]
     Indication: PSORIASIS
     Route: 042
     Dates: start: 20050101
  3. METHOTREXATE [Concomitant]
     Indication: IMMUNOSUPPRESSANT DRUG THERAPY
  4. SORIATANE [Concomitant]
     Indication: PSORIASIS

REACTIONS (6)
  - CARDIAC DISORDER [None]
  - CARDIAC VALVE DISEASE [None]
  - STAPHYLOCOCCAL INFECTION [None]
  - LYMPHOMA [None]
  - ERYTHRODERMIC PSORIASIS [None]
  - CEREBROVASCULAR ACCIDENT [None]
